FAERS Safety Report 8396257-5 (Version None)
Quarter: 2012Q1

REPORT INFORMATION
  Report Type: 
  Country: None (occurrence: None)
  Receive Date: 20120323
  Receipt Date: 20110725
  Transmission Date: 20120608
  Serious: Yes (Other)
  Sender: FDA-Public Use
  Company Number: 163-21880-11072957

PATIENT
  Age: 78 Year
  Sex: Female

DRUGS (7)
  1. TOPROL-XL [Concomitant]
  2. HYDROCHLOROTHIAZIDE [Concomitant]
  3. CALCIUM CARBONATE [Concomitant]
  4. FISH OIL (FISH OIL) [Concomitant]
  5. REVLIMID [Suspect]
     Indication: MYELODYSPLASTIC SYNDROME
     Dosage: 10 MG, DAILY X 21 DAYS, PO
     Route: 048
     Dates: start: 20110720
  6. ALLOPURINOL [Concomitant]
  7. MULTIVITAMIN [Concomitant]

REACTIONS (2)
  - PRURITUS GENERALISED [None]
  - EYELID OEDEMA [None]
